FAERS Safety Report 4477473-1 (Version None)
Quarter: 2004Q4

REPORT INFORMATION
  Report Type: 
  Country: None (occurrence: None)
  Receive Date: 20041013
  Receipt Date: 20040922
  Transmission Date: 20050328
  Serious: Yes (Other)
  Sender: FDA-Public Use
  Company Number: FR_040904695

PATIENT
  Age: 54 Year
  Sex: Female
  Weight: 70 kg

DRUGS (1)
  1. DULOXETINE HYDROCHLORIDE [Suspect]
     Indication: DEPRESSION
     Dosage: 60 MG/1 DAY
     Dates: start: 20040430

REACTIONS (7)
  - ALANINE AMINOTRANSFERASE INCREASED [None]
  - CERVIX CARCINOMA [None]
  - DEPRESSION [None]
  - GAMMA-GLUTAMYLTRANSFERASE INCREASED [None]
  - METASTASES TO LYMPH NODES [None]
  - OEDEMA PERIPHERAL [None]
  - PELVIC MASS [None]
